FAERS Safety Report 24453383 (Version 2)
Quarter: 2024Q4

REPORT INFORMATION
  Report Type: Report from Study
  Country: US (occurrence: US)
  Receive Date: 20241017
  Receipt Date: 20241018
  Transmission Date: 20250114
  Serious: No
  Sender: ROCHE
  Company Number: US-ROCHE-3249543

PATIENT
  Age: 63 Year
  Sex: Male
  Weight: 89.4 kg

DRUGS (12)
  1. RITUXAN [Suspect]
     Active Substance: RITUXIMAB
     Indication: Nephritic syndrome
     Route: 041
     Dates: start: 20170428
  2. RITUXAN [Suspect]
     Active Substance: RITUXIMAB
     Indication: Glomerulonephritis membranous
  3. CELLCEPT [Suspect]
     Active Substance: MYCOPHENOLATE MOFETIL
     Indication: Glomerulonephritis membranous
     Route: 065
  4. TYLENOL [Concomitant]
     Active Substance: ACETAMINOPHEN
  5. ABILIFY [Concomitant]
     Active Substance: ARIPIPRAZOLE
  6. ASPIRIN [Concomitant]
     Active Substance: ASPIRIN
  7. COREG [Concomitant]
     Active Substance: CARVEDILOL
  8. CYMBALTA [Concomitant]
     Active Substance: DULOXETINE HYDROCHLORIDE
  9. FLONASE [Concomitant]
     Active Substance: FLUTICASONE PROPIONATE
  10. LASIX [Concomitant]
     Active Substance: FUROSEMIDE
  11. CLARITIN [Concomitant]
     Active Substance: LORATADINE
  12. TOPAMAX [Concomitant]
     Active Substance: TOPIRAMATE

REACTIONS (14)
  - Off label use [Unknown]
  - Drug intolerance [Unknown]
  - Proteinuria [Unknown]
  - Hyperkalaemia [Unknown]
  - Fatigue [Unknown]
  - Muscle spasms [Unknown]
  - Haematuria [Unknown]
  - Hypertension [Unknown]
  - Tinnitus [Unknown]
  - Memory impairment [Unknown]
  - Hyperlipidaemia [Unknown]
  - Obstructive sleep apnoea syndrome [Unknown]
  - Autoantibody positive [Unknown]
  - Drug hypersensitivity [Unknown]
